FAERS Safety Report 8947461 (Version 2)
Quarter: 2012Q4

REPORT INFORMATION
  Report Type: Report from Study
  Country: US (occurrence: US)
  Receive Date: 20121204
  Receipt Date: 20121204
  Transmission Date: 20130627
  Serious: Yes (Other)
  Sender: FDA-Public Use
  Company Number: US-ROCHE-1160813

PATIENT
  Age: 53 Year
  Sex: Female
  Weight: 91.71 kg

DRUGS (3)
  1. MYCOPHENOLATE MOFETIL [Suspect]
     Indication: RENAL TRANSPLANT
     Route: 048
     Dates: start: 1998
  2. CICLOSPORIN [Suspect]
     Indication: RENAL TRANSPLANT
     Route: 048
  3. PREDNISONE [Concomitant]
     Route: 065
     Dates: start: 200810

REACTIONS (4)
  - Herpes zoster [Unknown]
  - Convulsion [Not Recovered/Not Resolved]
  - Acetabulum fracture [Not Recovered/Not Resolved]
  - Herpes zoster [Recovered/Resolved]
